FAERS Safety Report 7425868-6 (Version None)
Quarter: 2011Q2

REPORT INFORMATION
  Report Type: 
  Country: None (occurrence: None)
  Receive Date: 20110420
  Receipt Date: 20110408
  Transmission Date: 20111010
  Serious: Yes (Other)
  Sender: FDA-Public Use
  Company Number: JP-JNJFOC-20110207954

PATIENT
  Age: 28 Year
  Sex: Male

DRUGS (8)
  1. INVEGA [Suspect]
     Indication: SCHIZOPHRENIA
     Route: 048
  2. RISPERDAL [Suspect]
     Route: 048
  3. RISPERDAL [Suspect]
     Route: 048
  4. INVEGA [Suspect]
     Route: 048
  5. INVEGA [Suspect]
     Route: 048
  6. RISPERDAL [Suspect]
     Route: 048
  7. RISPERDAL [Suspect]
     Indication: SCHIZOPHRENIA
     Route: 048
  8. RISPERDAL [Suspect]
     Route: 048

REACTIONS (15)
  - PANIC ATTACK [None]
  - WITHDRAWAL SYNDROME [None]
  - ANGER [None]
  - HYPOAESTHESIA [None]
  - TARDIVE DYSKINESIA [None]
  - PHOBIA [None]
  - EXTRAPYRAMIDAL DISORDER [None]
  - FATIGUE [None]
  - NERVOUS SYSTEM DISORDER [None]
  - HALLUCINATION, AUDITORY [None]
  - CLUTTERING [None]
  - DELUSION [None]
  - INSOMNIA [None]
  - CONVULSION [None]
  - AGGRESSION [None]
